FAERS Safety Report 23359618 (Version 1)
Quarter: 2024Q1

REPORT INFORMATION
  Report Type: Spontaneous
  Country: US (occurrence: US)
  Receive Date: 20240103
  Receipt Date: 20240103
  Transmission Date: 20240410
  Serious: No
  Sender: FDA-Public Use
  Company Number: US-PADAGIS-2023PAD01820

PATIENT

DRUGS (1)
  1. ESTRADIOL VAGINAL [Suspect]
     Active Substance: ESTRADIOL
     Indication: Product used for unknown indication
     Dosage: 0.5 G
     Route: 067
     Dates: start: 202311

REACTIONS (3)
  - Prescribed underdose [Unknown]
  - Device maintenance issue [Unknown]
  - Device use issue [Unknown]

NARRATIVE: CASE EVENT DATE: 20231101
